FAERS Safety Report 9814978 (Version 2)
Quarter: 2014Q1

REPORT INFORMATION
  Report Type: Report from Study
  Country: US (occurrence: US)
  Receive Date: 20140113
  Receipt Date: 20140113
  Transmission Date: 20141002
  Serious: Yes (Other)
  Sender: FDA-Public Use
  Company Number: US-ABBVIE-14P-163-1185267-00

PATIENT
  Age: 54 Year
  Sex: Female

DRUGS (2)
  1. HUMIRA [Suspect]
     Indication: CROHN^S DISEASE
     Dates: start: 20131031
  2. PREDNISONE [Concomitant]
     Indication: PRODUCT USED FOR UNKNOWN INDICATION

REACTIONS (5)
  - Vaginal haemorrhage [Recovered/Resolved]
  - Menorrhagia [Recovered/Resolved]
  - Thrombosis [Recovered/Resolved]
  - Menopausal symptoms [Unknown]
  - Drug ineffective [Unknown]
